FAERS Safety Report 7107158-4 (Version None)
Quarter: 2010Q4

REPORT INFORMATION
  Report Type: 
  Country: None (occurrence: None)
  Receive Date: 20101116
  Receipt Date: 20101014
  Transmission Date: 20110411
  Serious: No
  Sender: FDA-Public Use
  Company Number: US-ABBOTT-10P-163-0678413-00

PATIENT
  Sex: Female

DRUGS (2)
  1. SIMCOR [Suspect]
     Indication: PRODUCT USED FOR UNKNOWN INDICATION
     Dosage: 500/20MG TWO TABLETS AT BEDTIME
     Route: 048
     Dates: start: 20100923
  2. SIMCOR [Suspect]
     Dosage: 500/20MG ONE TABLET AT BEDTIME
     Route: 048

REACTIONS (3)
  - ARTHRALGIA [None]
  - FLUSHING [None]
  - TENDONITIS [None]
